FAERS Safety Report 5712290-3 (Version None)
Quarter: 2008Q2

REPORT INFORMATION
  Report Type: 
  Country: None (occurrence: None)
  Receive Date: 20080421
  Receipt Date: 20080421
  Transmission Date: 20081010
  Serious: Yes (Hospitalization)
  Sender: FDA-Public Use
  Company Number: None

PATIENT
  Age: 81 Year
  Sex: Male
  Weight: 67.59 kg

DRUGS (2)
  1. TERAZOSIN HCL [Suspect]
     Indication: BENIGN PROSTATIC HYPERPLASIA
     Dosage: 5 MG AT BEDTIME PO
     Route: 048
     Dates: start: 20050202, end: 20071221
  2. TERAZOSIN HCL [Suspect]
     Indication: HYPERTENSION
     Dosage: 5 MG AT BEDTIME PO
     Route: 048
     Dates: start: 20050202, end: 20071221

REACTIONS (6)
  - BACK PAIN [None]
  - DRUG DOSE OMISSION [None]
  - INITIAL INSOMNIA [None]
  - LOSS OF CONSCIOUSNESS [None]
  - NO THERAPEUTIC RESPONSE [None]
  - ORTHOSTATIC HYPERTENSION [None]
